FAERS Safety Report 5957507-5 (Version None)
Quarter: 2008Q4

REPORT INFORMATION
  Report Type: 
  Country: None (occurrence: None)
  Receive Date: 20081112
  Receipt Date: 20081103
  Transmission Date: 20090506
  Serious: Yes (Other)
  Sender: FDA-Public Use
  Company Number: WAES 0811USA00784

PATIENT
  Age: 55 Year
  Sex: Male
  Weight: 73.0291 kg

DRUGS (5)
  1. ISENTRESS [Suspect]
     Indication: HIV INFECTION
     Dosage: 400 MG/BID/PO
     Route: 048
     Dates: start: 20080916
  2. ETRAVIRINE UNK [Suspect]
     Indication: HIV INFECTION
     Dosage: 200 MG/BID/PO
     Route: 048
     Dates: start: 20080916
  3. MARAVIROC UNK [Suspect]
     Indication: HIV INFECTION
     Dosage: 150 MG/BID/PO
     Route: 048
     Dates: start: 20080916
  4. DARUNAVIR UNK [Suspect]
     Indication: HIV INFECTION
     Dosage: 600 MG/BID/PO
     Route: 048
     Dates: start: 20080916
  5. NORVIR [Suspect]
     Indication: HIV INFECTION
     Dosage: 100 MG/BID/PO
     Route: 048
     Dates: start: 20080916

REACTIONS (3)
  - ASTHENIA [None]
  - DIARRHOEA [None]
  - EPISTAXIS [None]
